FAERS Safety Report 5642405-7 (Version None)
Quarter: 2008Q1

REPORT INFORMATION
  Report Type: 
  Country: None (occurrence: None)
  Receive Date: 20080131
  Receipt Date: 20071128
  Transmission Date: 20080703
  Serious: No
  Sender: FDA-Public Use
  Company Number: US200712000585

PATIENT
  Age: 66 Year
  Sex: Female
  Weight: 85.7 kg

DRUGS (9)
  1. BYETTA [Suspect]
     Indication: TYPE 2 DIABETES MELLITUS
     Dosage: 5 UG, 2/D, SUBCUTANEOUS; 10 UG, 2/D, SUBCUTANEOUS; 5 UG, SUBCUTANEOUS; 10 UG, 2/D, SUBCUTANEOUS
     Route: 058
     Dates: start: 20070101, end: 20070101
  2. BYETTA [Suspect]
     Indication: TYPE 2 DIABETES MELLITUS
     Dosage: 5 UG, 2/D, SUBCUTANEOUS; 10 UG, 2/D, SUBCUTANEOUS; 5 UG, SUBCUTANEOUS; 10 UG, 2/D, SUBCUTANEOUS
     Route: 058
     Dates: start: 20070601, end: 20070101
  3. BYETTA [Suspect]
     Indication: TYPE 2 DIABETES MELLITUS
     Dosage: 5 UG, 2/D, SUBCUTANEOUS; 10 UG, 2/D, SUBCUTANEOUS; 5 UG, SUBCUTANEOUS; 10 UG, 2/D, SUBCUTANEOUS
     Route: 058
     Dates: start: 20070301, end: 20070601
  4. BYETTA [Suspect]
     Indication: TYPE 2 DIABETES MELLITUS
     Dosage: 5 UG, 2/D, SUBCUTANEOUS; 10 UG, 2/D, SUBCUTANEOUS; 5 UG, SUBCUTANEOUS; 10 UG, 2/D, SUBCUTANEOUS
     Route: 058
     Dates: start: 20071101, end: 20071101
  5. BYETTA [Suspect]
     Indication: TYPE 2 DIABETES MELLITUS
     Dosage: 5 UG, 2/D, SUBCUTANEOUS; 10 UG, 2/D, SUBCUTANEOUS; 5 UG, SUBCUTANEOUS; 10 UG, 2/D, SUBCUTANEOUS
     Route: 058
     Dates: start: 20070101
  6. EXENATIDE (EXENATIDE) [Concomitant]
  7. ATACAND [Concomitant]
  8. HYDROCHLOROTHIAZIDE [Concomitant]
  9. NORVASC [Concomitant]

REACTIONS (6)
  - ABDOMINAL DISTENSION [None]
  - BLOOD GLUCOSE DECREASED [None]
  - BLOOD GLUCOSE INCREASED [None]
  - DECREASED APPETITE [None]
  - DRUG EFFECT DECREASED [None]
  - INCORRECT DOSE ADMINISTERED [None]
